FAERS Safety Report 7298829-8 (Version None)
Quarter: 2011Q1

REPORT INFORMATION
  Report Type: 
  Country: None (occurrence: None)
  Receive Date: 20110217
  Receipt Date: 20110210
  Transmission Date: 20110831
  Serious: Yes (Disabling)
  Sender: FDA-Public Use
  Company Number: CO-ROCHE-758341

PATIENT
  Sex: Male

DRUGS (4)
  1. PREDNISOLONE [Concomitant]
     Route: 048
  2. CALCITRIOL [Concomitant]
     Route: 048
  3. CELLCEPT [Suspect]
     Dosage: FREQUENCY: QD
     Route: 048
     Dates: start: 20040522
  4. AMLODIPINE [Concomitant]
     Indication: HYPERTENSION
     Dosage: DOSE: NO INFORMATION, FREQUENCY: QD
     Route: 048

REACTIONS (1)
  - TRANSPLANT REJECTION [None]
